FAERS Safety Report 10484902 (Version 2)
Quarter: 2015Q4

REPORT INFORMATION
  Report Type: Spontaneous
  Country: DK (occurrence: DK)
  Receive Date: 20140930
  Receipt Date: 20151006
  Transmission Date: 20160304
  Serious: Yes (Other)
  Sender: FDA-Public Use
  Company Number: PHHY2014DK125971

PATIENT
  Age: 54 Year
  Sex: Female
  Weight: 60 kg

DRUGS (3)
  1. PREDNISOLON [Concomitant]
     Active Substance: PREDNISOLONE
     Indication: NEOPLASM MALIGNANT
     Dosage: UNK UKN, UNK
     Route: 065
     Dates: start: 20130527
  2. IBANDRONATE [Concomitant]
     Active Substance: IBANDRONATE SODIUM
     Indication: METASTASES TO BONE
     Route: 048
     Dates: start: 20140207, end: 20150115
  3. ZOMETA [Suspect]
     Active Substance: ZOLEDRONIC ACID
     Indication: BREAST CANCER METASTATIC
     Dosage: 4 MG, 3 WEEKS
     Route: 042
     Dates: start: 20130712, end: 20140207

REACTIONS (3)
  - Impaired healing [Unknown]
  - Osteonecrosis of jaw [Recovered/Resolved]
  - Jaw disorder [Unknown]

NARRATIVE: CASE EVENT DATE: 20140401
